FAERS Safety Report 9308343 (Version 1)
Quarter: 2013Q2

REPORT INFORMATION
  Report Type: Spontaneous
  Country: US (occurrence: US)
  Receive Date: 20130524
  Receipt Date: 20130524
  Transmission Date: 20140414
  Serious: No
  Sender: FDA-Public Use
  Company Number: US-PFIZER INC-2013159214

PATIENT
  Age: 69 Year
  Sex: Male
  Weight: 113 kg

DRUGS (2)
  1. LIPITOR [Suspect]
     Indication: BLOOD CHOLESTEROL INCREASED
     Dosage: 20 MG DAILY
     Dates: start: 2003
  2. CELEBREX [Concomitant]
     Dosage: 200MG DAILY

REACTIONS (3)
  - Constipation [Not Recovered/Not Resolved]
  - Myalgia [Unknown]
  - Asthenia [Not Recovered/Not Resolved]
